FAERS Safety Report 12407850 (Version 1)
Quarter: 2016Q2

REPORT INFORMATION
  Report Type: Spontaneous
  Country: US (occurrence: US)
  Receive Date: 20160526
  Receipt Date: 20160526
  Transmission Date: 20160815
  Serious: Yes (Other)
  Sender: FDA-Public Use
  Company Number: US-MDT-ADR-2015-02300

PATIENT
  Age: 68 Year
  Sex: Female

DRUGS (26)
  1. HYDROXYZINE HCL [Suspect]
     Active Substance: HYDROXYZINE HYDROCHLORIDE
     Route: 048
  2. MORPHINE SULFATE. [Suspect]
     Active Substance: MORPHINE SULFATE
     Route: 037
     Dates: start: 20151130
  3. HYDROXYCHLOROQUINE SULFATE. [Suspect]
     Active Substance: HYDROXYCHLOROQUINE SULFATE
  4. DIPHENOXYLATE ATROPINE GENERIC FOR LOMOTIL [Suspect]
     Active Substance: ATROPINE\DIPHENOXYLATE HYDROCHLORIDE
  5. MORPHINE [Suspect]
     Active Substance: MORPHINE
     Dosage: 21.668 MG/DAY
     Route: 037
  6. PREDNISONE. [Suspect]
     Active Substance: PREDNISONE
  7. CALCIUM 600 PLUS D [Suspect]
     Active Substance: CALCIUM CARBONATE\VITAMIN D
     Dosage: 600-400 MG, 2 TABLETS PER DAY
     Route: 048
  8. METOCLOPRAMIDE HCL [Suspect]
     Active Substance: METOCLOPRAMIDE HYDROCHLORIDE
     Route: 048
  9. BUPIVACAINE. [Suspect]
     Active Substance: BUPIVACAINE
     Dosage: 0.3124 MG/DAY
     Route: 037
  10. ACETAMINOPHEN\HYDROCODONE BITARTRATE [Suspect]
     Active Substance: ACETAMINOPHEN\HYDROCODONE BITARTRATE
     Dosage: 7.5-325 MG, 1 TABLET EVERY 4 TO 6 HOURS AS NEEDED
     Route: 048
  11. VENTOLIN HFA [Suspect]
     Active Substance: ALBUTEROL SULFATE
     Dosage: 108 (90 BASE) MCG/ACT (1-2 PUFFS AEROSOL SOLUTION EVERY 4-6 AS NEEDED
     Route: 055
  12. COMPOUNDED BACLOFEN [Suspect]
     Active Substance: BACLOFEN
     Dosage: 39.0176 MCG/DAY
     Route: 037
  13. ONDANSETRON [Suspect]
     Active Substance: ONDANSETRON
     Route: 048
  14. CILOSTAZOL. [Suspect]
     Active Substance: CILOSTAZOL
  15. TYLENOL EXTRA STRENGTH [Suspect]
     Active Substance: ACETAMINOPHEN
     Dosage: 500 MG, 3 TABLETS EVERY 6 HOURS AS NEEDED
     Route: 048
  16. ASPIRIN. [Suspect]
     Active Substance: ASPIRIN
  17. FLUTICASONE PROPIONATE. [Suspect]
     Active Substance: FLUTICASONE PROPIONATE
     Route: 045
  18. COMPOUNDED BACLOFEN [Suspect]
     Active Substance: BACLOFEN
     Dosage: 49.984 MCG/DAY
     Route: 037
  19. ASMANEX [Suspect]
     Active Substance: MOMETASONE FUROATE
     Route: 055
  20. TIZANIDINE HCL [Suspect]
     Active Substance: TIZANIDINE HYDROCHLORIDE
  21. DIPHENHYDRAMINE HCL [Suspect]
     Active Substance: DIPHENHYDRAMINE HYDROCHLORIDE
     Route: 048
  22. GABAPENTIN. [Suspect]
     Active Substance: GABAPENTIN
     Route: 048
  23. MORPHINE [Suspect]
     Active Substance: MORPHINE
     Dosage: 24.386 MG/DAY
     Route: 037
  24. BUPIVACAINE. [Suspect]
     Active Substance: BUPIVACAINE
     Dosage: 0.24386 MG/DAY
     Route: 037
  25. OMEPRAZOLE. [Suspect]
     Active Substance: OMEPRAZOLE
  26. ALENDRONATE SODIUM. [Suspect]
     Active Substance: ALENDRONATE SODIUM
     Route: 048

REACTIONS (4)
  - Pneumonia [Unknown]
  - Muscle spasms [Unknown]
  - Infusion site mass [Unknown]
  - Nuclear magnetic resonance imaging abnormal [Unknown]

NARRATIVE: CASE EVENT DATE: 2015
